FAERS Safety Report 4864532-4 (Version None)
Quarter: 2005Q4

REPORT INFORMATION
  Report Type: 
  Country: None (occurrence: None)
  Receive Date: 20051222
  Receipt Date: 20050914
  Transmission Date: 20060501
  Serious: Yes (Disabling)
  Sender: FDA-Public Use
  Company Number: US-ROCHE-417884

PATIENT
  Age: 45 Year
  Sex: Female

DRUGS (2)
  1. PEGASYS [Suspect]
     Route: 065
     Dates: start: 20041111, end: 20051007
  2. COPEGUS [Suspect]
     Route: 065
     Dates: start: 20041111, end: 20051007

REACTIONS (3)
  - CONTUSION [None]
  - FALL [None]
  - RIB FRACTURE [None]
